FAERS Safety Report 7222784-X (Version None)
Quarter: 2011Q1

REPORT INFORMATION
  Report Type: 
  Country: None (occurrence: None)
  Receive Date: 20110106
  Receipt Date: 20110106
  Transmission Date: 20110831
  Serious: Yes (Hospitalization)
  Sender: FDA-Public Use
  Company Number: None

PATIENT
  Age: 85 Year
  Sex: Female
  Weight: 50 kg

DRUGS (6)
  1. TRAZODONE HCL [Suspect]
     Indication: DEPRESSION
     Dosage: 600MG PO CHRONIC W/RECENT DOUBLE DOSE
     Route: 048
  2. ARICEPT [Suspect]
  3. EFFEXOR [Concomitant]
  4. NAMENDA [Suspect]
  5. VITAMIN D [Concomitant]
  6. LIPITOR [Suspect]

REACTIONS (2)
  - SYNCOPE [None]
  - INCORRECT DOSE ADMINISTERED [None]
